FAERS Safety Report 15533431 (Version 1)
Quarter: 2018Q4

REPORT INFORMATION
  Report Type: Report from Study
  Country: US (occurrence: US)
  Receive Date: 20181019
  Receipt Date: 20181019
  Transmission Date: 20190205
  Serious: Yes (Hospitalization)
  Sender: FDA-Public Use
  Company Number: US-MALLINCKRODT-T201705301

PATIENT
  Age: 59 Year
  Sex: Female
  Weight: 46 kg

DRUGS (10)
  1. MUCOMYST [Concomitant]
     Active Substance: ACETYLCYSTEINE
     Indication: DYSPNOEA
     Dosage: 200 MG/ML, 20% INHALATION, QID
     Dates: start: 20170908
  2. LEVSIN/SL [Concomitant]
     Indication: SALIVARY HYPERSECRETION
     Dosage: 0.125 MG, Q4HRS, PRN
     Route: 060
     Dates: start: 20170806
  3. MULTIVITAMIN [Concomitant]
     Active Substance: VITAMINS
     Indication: NUTRITIONAL SUPPLEMENTATION
     Dosage: 3 TBSP, QD
     Route: 048
     Dates: start: 201701
  4. ROBINUL [Concomitant]
     Active Substance: GLYCOPYRROLATE
     Indication: SALIVARY HYPERSECRETION
     Dosage: 2 MG BID
     Dates: start: 20171107
  5. NUEDEXTA [Concomitant]
     Active Substance: DEXTROMETHORPHAN HYDROBROMIDE\QUINIDINE SULFATE
     Indication: AFFECT LABILITY
     Dosage: 20-10 MG BID
     Route: 048
     Dates: start: 201608
  6. RILUZOLE. [Concomitant]
     Active Substance: RILUZOLE
     Indication: AMYOTROPHIC LATERAL SCLEROSIS
     Dosage: 50 MG, BID
     Route: 048
     Dates: start: 20170119
  7. PROVENTIL [Concomitant]
     Active Substance: ALBUTEROL
     Indication: SECRETION DISCHARGE
     Dosage: 2.5 MG INHALATION , QID
     Dates: start: 20170908
  8. REPOSITORY CORTICOTROPIN INJECTION [Suspect]
     Active Substance: CORTICOTROPIN
     Indication: AMYOTROPHIC LATERAL SCLEROSIS
     Dosage: 0.2 ML, QD
     Route: 058
     Dates: start: 20170907
  9. MUCOMYST [Concomitant]
     Active Substance: ACETYLCYSTEINE
     Indication: SECRETION DISCHARGE
  10. SODIUM CHLORIDE. [Concomitant]
     Active Substance: SODIUM CHLORIDE
     Indication: SECRETION DISCHARGE
     Dosage: 3 % INHALATION QID
     Dates: start: 20170908

REACTIONS (4)
  - Respiratory failure [Recovered/Resolved]
  - Pleural effusion [Recovered/Resolved]
  - Pneumonia [Recovering/Resolving]
  - Empyema [Recovered/Resolved]

NARRATIVE: CASE EVENT DATE: 20171212
